FAERS Safety Report 5385444-6 (Version None)
Quarter: 2007Q3

REPORT INFORMATION
  Report Type: 
  Country: None (occurrence: None)
  Receive Date: 20070706
  Receipt Date: 20070706
  Transmission Date: 20080115
  Serious: No
  Sender: FDA-Public Use
  Company Number: None

PATIENT
  Sex: Female
  Weight: 68.4932 kg

DRUGS (2)
  1. ZYPREXA [Suspect]
     Dosage: 30 MG QD PO
     Route: 048
     Dates: start: 20070625
  2. TYLENOL EXTRA STRENGTH [Concomitant]

REACTIONS (1)
  - OEDEMA PERIPHERAL [None]
